FAERS Safety Report 6026066-3 (Version None)
Quarter: 2008Q4

REPORT INFORMATION
  Report Type: 
  Country: None (occurrence: None)
  Receive Date: 20081230
  Receipt Date: 20081215
  Transmission Date: 20090506
  Serious: Yes (Other)
  Sender: FDA-Public Use
  Company Number: SPV1-2008-02758

PATIENT
  Age: 64 Year
  Sex: Female
  Weight: 72.6 kg

DRUGS (9)
  1. FOSRENOL [Suspect]
     Indication: RENAL FAILURE CHRONIC
     Dosage: MG, ORAL
     Route: 048
     Dates: start: 20080101
  2. ALLOPURINOL [Concomitant]
  3. COLCHICINE (COLCHICINE) [Concomitant]
  4. LISINOPRIL [Concomitant]
  5. RETAPAMULIN (RETAPAMULIN) [Concomitant]
  6. EPOGEN [Concomitant]
  7. LORATAB (LORATADINE) [Concomitant]
  8. DOCUSATE (DOCUSATE) [Concomitant]
  9. VITAMINS NOS [Concomitant]

REACTIONS (2)
  - BLOOD PRESSURE DECREASED [None]
  - BONE LESION [None]
